FAERS Safety Report 16664382 (Version 3)
Quarter: 2021Q1

REPORT INFORMATION
  Report Type: Report from Study
  Country: JP (occurrence: JP)
  Receive Date: 20190802
  Receipt Date: 20210316
  Transmission Date: 20210419
  Serious: Yes (Other)
  Sender: FDA-Public Use
  Company Number: JP-GILEAD-2018-0361029

PATIENT
  Age: 32 Year
  Sex: Male

DRUGS (3)
  1. EMTRICITABINE/TENOFOVIR ALAFENAMIDE [Suspect]
     Active Substance: EMTRICITABINE\TENOFOVIR
     Indication: HIV INFECTION
     Dosage: 1 DF, QD
     Route: 048
     Dates: start: 20170619
  2. TIVICAY [Suspect]
     Active Substance: DOLUTEGRAVIR SODIUM
     Indication: HIV INFECTION
     Dosage: 1 DOSAGE FORM, QD
     Route: 048
     Dates: start: 20170619
  3. ALLEGRA [Concomitant]
     Active Substance: FEXOFENADINE HYDROCHLORIDE
     Indication: SEASONAL ALLERGY
     Dosage: UNK
     Dates: start: 20200331, end: 20200530

REACTIONS (7)
  - Oropharyngeal gonococcal infection [Recovering/Resolving]
  - Syphilis [Not Recovered/Not Resolved]
  - Chlamydial infection [Not Recovered/Not Resolved]
  - Blood creatinine increased [Recovering/Resolving]
  - Pharyngitis [Recovering/Resolving]
  - Beta 2 microglobulin urine increased [Not Recovered/Not Resolved]
  - Nausea [Recovering/Resolving]

NARRATIVE: CASE EVENT DATE: 20170619
